FAERS Safety Report 10238380 (Version 2)
Quarter: 2014Q3

REPORT INFORMATION
  Report Type: Spontaneous
  Country: FR (occurrence: FR)
  Receive Date: 20140616
  Receipt Date: 20140919
  Transmission Date: 20150326
  Serious: Yes (Other)
  Sender: FDA-Public Use
  Company Number: FR-JNJFOC-20140604096

PATIENT
  Sex: Male

DRUGS (2)
  1. EPITOMAX [Suspect]
     Active Substance: TOPIRAMATE
     Indication: EPILEPSY
     Route: 048
  2. DEPAKINE [Concomitant]
     Active Substance: VALPROATE SODIUM
     Indication: PRODUCT USED FOR UNKNOWN INDICATION
     Route: 065

REACTIONS (5)
  - Uveitis [Unknown]
  - Ocular hypertension [Unknown]
  - Glaucoma [Unknown]
  - Visual acuity reduced [Unknown]
  - Acne [Recovering/Resolving]
